FAERS Safety Report 7007580-0 (Version None)
Quarter: 2010Q3

REPORT INFORMATION
  Report Type: 
  Country: None (occurrence: None)
  Receive Date: 20100922
  Receipt Date: 20100907
  Transmission Date: 20110219
  Serious: No
  Sender: FDA-Public Use
  Company Number: CA-GENENTECH-306348

PATIENT
  Sex: Male

DRUGS (1)
  1. XOLAIR [Suspect]
     Indication: ASTHMA
     Dosage: 225 MG, Q2W
     Route: 058
     Dates: start: 20100212

REACTIONS (4)
  - FATIGUE [None]
  - PYREXIA [None]
  - SOMNOLENCE [None]
  - TONSILLITIS [None]
